FAERS Safety Report 18329724 (Version 1)
Quarter: 2020Q3

REPORT INFORMATION
  Report Type: Spontaneous
  Country: US (occurrence: US)
  Receive Date: 20200929
  Receipt Date: 20200929
  Transmission Date: 20201103
  Serious: No
  Sender: FDA-Public Use
  Company Number: None

PATIENT
  Age: 57 Year
  Sex: Female
  Weight: 63.5 kg

DRUGS (1)
  1. CARISOPRODOL. [Suspect]
     Active Substance: CARISOPRODOL
     Indication: MUSCLE SPASMS
     Dosage: ?          QUANTITY:1 DF DOSAGE FORM;?
     Route: 048
     Dates: start: 20200917, end: 20200919

REACTIONS (5)
  - Therapeutic product effect incomplete [None]
  - Product substitution issue [None]
  - Nausea [None]
  - Eye irritation [None]
  - Headache [None]

NARRATIVE: CASE EVENT DATE: 20200917
